FAERS Safety Report 13295758 (Version 1)
Quarter: 2017Q1

REPORT INFORMATION
  Report Type: Report from Study
  Country: None (occurrence: DE)
  Receive Date: 20170303
  Receipt Date: 20170303
  Transmission Date: 20170428
  Serious: Yes (Hospitalization, Other)
  Sender: FDA-Public Use
  Company Number: DE-ABBVIE-17P-062-1895222-00

PATIENT
  Age: 76 Year
  Sex: Male

DRUGS (5)
  1. QUETIAPIN [Concomitant]
     Active Substance: QUETIAPINE
     Indication: PRODUCT USED FOR UNKNOWN INDICATION
  2. APIXABAN [Concomitant]
     Active Substance: APIXABAN
     Indication: PRODUCT USED FOR UNKNOWN INDICATION
  3. DUODOPA [Suspect]
     Active Substance: CARBIDOPA\LEVODOPA
     Indication: PARKINSON^S DISEASE
     Dosage: MD 9.5 ML; CRD 3.5 ML/ H, ED 1.8 ML
     Route: 050
     Dates: start: 20160308
  4. METOHEXAL [Concomitant]
     Active Substance: METOPROLOL SUCCINATE
     Indication: PRODUCT USED FOR UNKNOWN INDICATION
  5. LEVOBETA C RETARD [Concomitant]
     Indication: PRODUCT USED FOR UNKNOWN INDICATION
     Dosage: 100MG/25MG

REACTIONS (13)
  - Cataract [Unknown]
  - Dyspnoea [Unknown]
  - Laceration [Unknown]
  - Stoma site odour [Unknown]
  - Excessive granulation tissue [Unknown]
  - Nausea [Unknown]
  - Fall [Unknown]
  - Choking [Unknown]
  - Stoma site discharge [Unknown]
  - Stoma site pain [Unknown]
  - Loss of consciousness [Unknown]
  - Stoma site haemorrhage [Unknown]
  - Headache [Unknown]

NARRATIVE: CASE EVENT DATE: 201701
